FAERS Safety Report 9514702 (Version 1)
Quarter: 2013Q3

REPORT INFORMATION
  Report Type: Spontaneous
  Country: FR (occurrence: None)
  Receive Date: 20130906
  Receipt Date: 20130906
  Transmission Date: 20140515
  Serious: Yes (Death, Hospitalization)
  Sender: FDA-Public Use
  Company Number: AUR-APL-2013-07282

PATIENT
  Age: 87 Year
  Sex: Male

DRUGS (13)
  1. PERINDOPRIL [Suspect]
     Indication: HYPERTENSION
     Route: 048
     Dates: end: 20130318
  2. AMIODARONE HCL [Suspect]
     Indication: ARRHYTHMIA
     Route: 048
     Dates: end: 20130320
  3. PANTOPRAZOLE [Suspect]
     Indication: PROPHYLAXIS
     Route: 048
     Dates: end: 20130320
  4. ALFUZOSIN HYDROCHLORIDE [Suspect]
     Indication: PRODUCT USED FOR UNKNOWN INDICATION
     Route: 048
     Dates: end: 20130312
  5. PARACETAMOL [Suspect]
     Indication: PAIN
     Dosage: 6 DOSAGE FORMS (2 DOSAGE FORMS, 3 IN 1 D)
     Route: 048
     Dates: end: 201303
  6. LASILIX FAIBLE [Suspect]
     Indication: HYPERTENSION
     Route: 048
     Dates: end: 20130318
  7. KARDEGIC (ACETYLSALICYLATE LYSINE) [Suspect]
     Indication: PLATELET AGGREGATION INHIBITION
     Route: 048
     Dates: end: 20130320
  8. ZOLPIDEM [Suspect]
     Indication: INSOMNIA
     Route: 048
     Dates: end: 20130318
  9. SPECIAFOLDINE (FOLIC ACID) [Suspect]
     Indication: FOLATE DEFICIENCY
     Route: 048
     Dates: end: 20130320
  10. ALLOPURINOL [Suspect]
     Indication: PRODUCT USED FOR UNKNOWN INDICATION
     Route: 048
     Dates: end: 20130312
  11. LEVOTHYROX (LEVOTHYROXINE SODIUM) INFUSION [Suspect]
     Indication: HYPOTHYROIDISM
     Route: 048
     Dates: end: 20130320
  12. AUGMENTIN [Suspect]
     Indication: PRODUCT USED FOR UNKNOWN INDICATION
     Dates: start: 20130313, end: 20130317
  13. PERFALGAN [Suspect]
     Indication: PAIN
     Dosage: 3 GM (1 GM, 3 IN 1 D)
     Route: 042
     Dates: start: 20130317, end: 20130321

REACTIONS (8)
  - Fall [None]
  - Cardiac failure [None]
  - Dyspnoea [None]
  - Oedema peripheral [None]
  - Renal failure chronic [None]
  - Hepatocellular injury [None]
  - Somnolence [None]
  - Hepatomegaly [None]
